FAERS Safety Report 6742214-1 (Version None)
Quarter: 2010Q2

REPORT INFORMATION
  Report Type: 
  Country: None (occurrence: None)
  Receive Date: 20100526
  Receipt Date: 20100517
  Transmission Date: 20101027
  Serious: Yes (Hospitalization)
  Sender: FDA-Public Use
  Company Number: GXKR2010US05561

PATIENT
  Age: 70 Year
  Sex: Female

DRUGS (7)
  1. HYDROXYCHLOROQUINE (NGX) [Suspect]
     Indication: ARTHRITIS
     Dosage: 200 MG, BID
     Route: 065
  2. TOPROL-XL [Concomitant]
     Dosage: 25 MG/DAY
     Route: 065
  3. LISINOPRIL [Concomitant]
     Dosage: 5 MG/DAY
     Route: 065
  4. FUROSEMIDE [Concomitant]
     Dosage: 40 MG/DAY
     Route: 065
  5. ASPIRIN [Concomitant]
     Dosage: 81 MG/DAY
     Route: 065
  6. CITRACAL [Concomitant]
     Dosage: 500 MG/DAY
     Route: 065
  7. MULTI-VITAMINS [Concomitant]
     Dosage: 1 DF/DAY
     Route: 065

REACTIONS (12)
  - ATROPHY [None]
  - BREATH SOUNDS ABNORMAL [None]
  - CARDIOTOXICITY [None]
  - CHEST DISCOMFORT [None]
  - COUGH [None]
  - DYSPNOEA [None]
  - GAIT DISTURBANCE [None]
  - MUSCULAR WEAKNESS [None]
  - MYOPATHY [None]
  - SKIN DISCOLOURATION [None]
  - TROPONIN [None]
  - WEIGHT DECREASED [None]
